FAERS Safety Report 7585585-9 (Version None)
Quarter: 2011Q2

REPORT INFORMATION
  Report Type: 
  Country: None (occurrence: None)
  Receive Date: 20110628
  Receipt Date: 20110628
  Transmission Date: 20111010
  Serious: Yes (Death)
  Sender: FDA-Public Use
  Company Number: None

PATIENT
  Sex: Female
  Weight: 112 kg

DRUGS (1)
  1. DABIGATRAN 150MG BI [Suspect]
     Indication: ATRIAL FIBRILLATION
     Dosage: 150 BID PO
     Route: 048

REACTIONS (7)
  - EPIGASTRIC DISCOMFORT [None]
  - UPPER GASTROINTESTINAL HAEMORRHAGE [None]
  - HYPOVOLAEMIC SHOCK [None]
  - DIZZINESS [None]
  - HAEMOGLOBIN DECREASED [None]
  - HYPOTENSION [None]
  - HAEMATOCRIT DECREASED [None]
